FAERS Safety Report 7119911-1 (Version None)
Quarter: 2010Q4

REPORT INFORMATION
  Report Type: 
  Country: None (occurrence: None)
  Receive Date: 20101123
  Receipt Date: 20101013
  Transmission Date: 20110411
  Serious: No
  Sender: FDA-Public Use
  Company Number: US-BRISTOL-MYERS SQUIBB COMPANY-15332794

PATIENT
  Age: 73 Year
  Sex: Female
  Weight: 113 kg

DRUGS (12)
  1. ONGLYZA [Suspect]
     Indication: TYPE 2 DIABETES MELLITUS
  2. GLUCOPHAGE [Concomitant]
  3. GLYBURIDE [Concomitant]
  4. LASIX [Concomitant]
  5. ATIVAN [Concomitant]
  6. ZOCOR [Concomitant]
  7. CELEBREX [Concomitant]
  8. DOXAZOSIN MESYLATE [Concomitant]
  9. ALLEGRA [Concomitant]
  10. DIOVAN [Concomitant]
  11. NORVASC [Concomitant]
  12. METOPROLOL [Concomitant]

REACTIONS (4)
  - ABDOMINAL DISCOMFORT [None]
  - DECREASED APPETITE [None]
  - FATIGUE [None]
  - NAUSEA [None]
